FAERS Safety Report 10098255 (Version 2)
Quarter: 2014Q4

REPORT INFORMATION
  Report Type: Spontaneous
  Country: US (occurrence: US)
  Receive Date: 20140423
  Receipt Date: 20141205
  Transmission Date: 20150528
  Serious: Yes (Hospitalization)
  Sender: FDA-Public Use
  Company Number: US-BRISTOL-MYERS SQUIBB COMPANY-20513396

PATIENT
  Age: 62 Year
  Sex: Male
  Weight: 100 kg

DRUGS (11)
  1. LANTUS [Concomitant]
     Active Substance: INSULIN GLARGINE
  2. TEMODAR [Concomitant]
     Active Substance: TEMOZOLOMIDE
     Dosage: 1 DF= 400
  3. CARDIZEM [Concomitant]
     Active Substance: DILTIAZEM HYDROCHLORIDE
     Dosage: 1 DF= 120
     Route: 048
  4. XANAX [Concomitant]
     Active Substance: ALPRAZOLAM
  5. LEXAPRO [Concomitant]
     Active Substance: ESCITALOPRAM OXALATE
  6. YERVOY [Suspect]
     Active Substance: IPILIMUMAB
     Indication: METASTATIC MALIGNANT MELANOMA
     Dosage: 1 DF=323
     Route: 042
     Dates: start: 20140217
  7. LOTENSIN [Concomitant]
     Active Substance: BENAZEPRIL HYDROCHLORIDE
     Dosage: 1 DF= 10
     Route: 048
  8. BETAPACE [Concomitant]
     Active Substance: SOTALOL HYDROCHLORIDE
     Dosage: 1 DF= 80
  9. APIDRA [Concomitant]
     Active Substance: INSULIN GLULISINE
  10. AMARYL [Concomitant]
     Active Substance: GLIMEPIRIDE
     Dosage: 1 DF=4
     Route: 048
  11. XARELTO [Concomitant]
     Active Substance: RIVAROXABAN
     Dosage: 1 DF= 10
     Route: 048

REACTIONS (2)
  - Diarrhoea [Not Recovered/Not Resolved]
  - Acute kidney injury [Recovered/Resolved]

NARRATIVE: CASE EVENT DATE: 2014
